FAERS Safety Report 5421099-X (Version None)
Quarter: 2007Q3

REPORT INFORMATION
  Report Type: 
  Country: None (occurrence: None)
  Receive Date: 20070821
  Receipt Date: 20070810
  Transmission Date: 20080115
  Serious: Yes (Other)
  Sender: FDA-Public Use
  Company Number: US-JNJFOC-20070802750

PATIENT
  Age: 53 Year
  Sex: Female
  Weight: 54.43 kg

DRUGS (5)
  1. TOPAMAX [Suspect]
     Dosage: ADDED DOSE INTERMITTENTLY
     Route: 048
  2. TOPAMAX [Suspect]
     Indication: MIGRAINE PROPHYLAXIS
     Route: 048
  3. TRAZODONE HCL [Concomitant]
     Indication: SLEEP DISORDER
     Dosage: TOOK FOR YEARS
     Route: 048
  4. ESTRADIOL [Concomitant]
     Indication: HORMONE REPLACEMENT THERAPY
     Route: 048
  5. PRILOSEC [Concomitant]
     Indication: GASTROOESOPHAGEAL REFLUX DISEASE
     Dosage: TOOK FOR YEARS
     Route: 048

REACTIONS (5)
  - ECZEMA [None]
  - HERPES ZOSTER [None]
  - INSOMNIA [None]
  - NEUROPATHY [None]
  - STUPOR [None]
